FAERS Safety Report 23396863 (Version 5)
Quarter: 2024Q2

REPORT INFORMATION
  Report Type: Report from Study
  Country: US (occurrence: US)
  Receive Date: 20240112
  Receipt Date: 20240412
  Transmission Date: 20240716
  Serious: Yes (Hospitalization, Other)
  Sender: FDA-Public Use
  Company Number: US-UCBSA-2023041675

PATIENT
  Sex: Male

DRUGS (10)
  1. FINTEPLA [Suspect]
     Active Substance: FENFLURAMINE
     Indication: Epilepsy
     Dosage: 0.7 MILLILITER, 2X/DAY (BID) FOR 7 DAYS
     Route: 048
     Dates: start: 20230817
  2. FINTEPLA [Suspect]
     Active Substance: FENFLURAMINE
     Indication: Off label use
     Dosage: 1.4 MILLILITER, 2X/DAY (BID) FOR 7 DAYS
     Route: 048
     Dates: start: 20230821
  3. FINTEPLA [Suspect]
     Active Substance: FENFLURAMINE
     Indication: Lennox-Gastaut syndrome
     Dosage: 2.4 MILLILITER, 2X/DAY (BID)
     Route: 048
     Dates: start: 2023
  4. FINTEPLA [Suspect]
     Active Substance: FENFLURAMINE
     Dosage: 2.4 MILLILITER, 2X/DAY (BID) VIA G-TUBE
     Dates: start: 2023
  5. FINTEPLA [Suspect]
     Active Substance: FENFLURAMINE
     Dosage: 2.4 MILLILITER, 2X/DAY (BID)
  6. FINTEPLA [Suspect]
     Active Substance: FENFLURAMINE
     Dosage: 2.4 MILLILITER, 2X/DAY (BID)
  7. FINTEPLA [Suspect]
     Active Substance: FENFLURAMINE
     Dosage: 1.5 MILLILITER, 2X/DAY (BID)
  8. FINTEPLA [Suspect]
     Active Substance: FENFLURAMINE
     Dosage: 1 MILLILITER, 2X/DAY (BID)
  9. KEPPRA [Suspect]
     Active Substance: LEVETIRACETAM
     Indication: Infantile spasms
     Dosage: 5 MILLILITER, 2X/DAY (BID) VIA G-TUBE
     Dates: start: 2019
  10. KEPPRA [Suspect]
     Active Substance: LEVETIRACETAM
     Indication: Myoclonic epilepsy

REACTIONS (13)
  - Respiratory syncytial virus infection [Recovered/Resolved]
  - Oxygen saturation decreased [Recovered/Resolved]
  - Seasonal allergy [Not Recovered/Not Resolved]
  - Pneumonia [Unknown]
  - Seizure [Recovering/Resolving]
  - Fall [Not Recovered/Not Resolved]
  - Head injury [Not Recovered/Not Resolved]
  - Bruxism [Not Recovered/Not Resolved]
  - Somnolence [Not Recovered/Not Resolved]
  - Cough [Unknown]
  - Off label use [Unknown]
  - Drug ineffective for unapproved indication [Unknown]
  - Product use in unapproved indication [Unknown]

NARRATIVE: CASE EVENT DATE: 20190101
